FAERS Safety Report 8105277-7 (Version None)
Quarter: 2012Q1

REPORT INFORMATION
  Report Type: 
  Country: None (occurrence: None)
  Receive Date: 20120201
  Receipt Date: 20120123
  Transmission Date: 20120608
  Serious: Yes (Other)
  Sender: FDA-Public Use
  Company Number: FR-BAYER-2012-007758

PATIENT
  Age: 34 Year
  Sex: Female

DRUGS (2)
  1. MOXIFLOXACIN HCL [Suspect]
     Indication: CHRONIC SINUSITIS
     Dosage: 400 MG, ONCE
     Route: 048
     Dates: start: 20110208
  2. PREDNISOLONE [Concomitant]
     Indication: CHRONIC SINUSITIS
     Route: 048

REACTIONS (6)
  - DYSPNOEA [None]
  - ANAPHYLACTOID REACTION [None]
  - SKIN TEST NEGATIVE [None]
  - PRURITUS [None]
  - URTICARIA [None]
  - ANGIOEDEMA [None]
